FAERS Safety Report 23640835 (Version 2)
Quarter: 2024Q1

REPORT INFORMATION
  Report Type: Spontaneous
  Country: US (occurrence: US)
  Receive Date: 20240318
  Receipt Date: 20240321
  Transmission Date: 20240410
  Serious: No
  Sender: FDA-Public Use
  Company Number: US-AMGEN-USASP2024054721

PATIENT
  Age: 64 Year
  Sex: Male

DRUGS (41)
  1. REPATHA [Suspect]
     Active Substance: EVOLOCUMAB
     Indication: Product used for unknown indication
     Dosage: 140 MILLIGRAM, Q2WK
     Route: 058
     Dates: start: 202310
  2. REPATHA [Suspect]
     Active Substance: EVOLOCUMAB
     Dosage: 140 MILLIGRAM, Q2WK
     Route: 058
  3. REPATHA [Suspect]
     Active Substance: EVOLOCUMAB
     Dosage: 140 MILLIGRAM, Q2WK
     Route: 058
  4. REPATHA [Suspect]
     Active Substance: EVOLOCUMAB
     Dosage: 140 MILLIGRAM, Q2WK
     Route: 058
  5. REPATHA [Suspect]
     Active Substance: EVOLOCUMAB
     Dosage: 140 MILLIGRAM, Q2WK
     Route: 058
  6. REPATHA [Suspect]
     Active Substance: EVOLOCUMAB
     Dosage: 140 MILLIGRAM, Q2WK
     Route: 058
  7. REPATHA [Suspect]
     Active Substance: EVOLOCUMAB
     Route: 058
  8. REPATHA [Suspect]
     Active Substance: EVOLOCUMAB
     Route: 058
  9. REPATHA [Suspect]
     Active Substance: EVOLOCUMAB
     Route: 058
  10. REPATHA [Suspect]
     Active Substance: EVOLOCUMAB
     Route: 058
  11. REPATHA [Suspect]
     Active Substance: EVOLOCUMAB
     Route: 058
  12. REPATHA [Suspect]
     Active Substance: EVOLOCUMAB
     Route: 058
  13. REPATHA [Suspect]
     Active Substance: EVOLOCUMAB
     Route: 058
  14. REPATHA [Suspect]
     Active Substance: EVOLOCUMAB
     Route: 058
  15. REPATHA [Suspect]
     Active Substance: EVOLOCUMAB
     Route: 058
  16. REPATHA [Suspect]
     Active Substance: EVOLOCUMAB
     Route: 058
  17. REPATHA [Suspect]
     Active Substance: EVOLOCUMAB
     Route: 058
  18. REPATHA [Suspect]
     Active Substance: EVOLOCUMAB
     Route: 058
  19. REPATHA [Suspect]
     Active Substance: EVOLOCUMAB
     Route: 058
  20. REPATHA [Suspect]
     Active Substance: EVOLOCUMAB
     Route: 058
  21. REPATHA [Suspect]
     Active Substance: EVOLOCUMAB
     Route: 058
  22. REPATHA [Suspect]
     Active Substance: EVOLOCUMAB
     Route: 058
  23. REPATHA [Suspect]
     Active Substance: EVOLOCUMAB
     Route: 058
  24. REPATHA [Suspect]
     Active Substance: EVOLOCUMAB
     Route: 058
  25. REPATHA [Suspect]
     Active Substance: EVOLOCUMAB
     Route: 058
  26. REPATHA [Suspect]
     Active Substance: EVOLOCUMAB
     Route: 058
  27. REPATHA [Suspect]
     Active Substance: EVOLOCUMAB
     Route: 058
  28. REPATHA [Suspect]
     Active Substance: EVOLOCUMAB
     Route: 058
  29. REPATHA [Suspect]
     Active Substance: EVOLOCUMAB
     Route: 058
  30. REPATHA [Suspect]
     Active Substance: EVOLOCUMAB
     Route: 058
  31. REPATHA [Suspect]
     Active Substance: EVOLOCUMAB
     Route: 058
  32. REPATHA [Suspect]
     Active Substance: EVOLOCUMAB
     Route: 058
  33. REPATHA [Suspect]
     Active Substance: EVOLOCUMAB
     Route: 058
  34. REPATHA [Suspect]
     Active Substance: EVOLOCUMAB
     Route: 058
  35. REPATHA [Suspect]
     Active Substance: EVOLOCUMAB
     Route: 058
  36. REPATHA [Suspect]
     Active Substance: EVOLOCUMAB
     Route: 058
  37. REPATHA [Suspect]
     Active Substance: EVOLOCUMAB
     Route: 058
  38. REPATHA [Suspect]
     Active Substance: EVOLOCUMAB
     Route: 058
  39. REPATHA [Suspect]
     Active Substance: EVOLOCUMAB
     Route: 058
  40. TRULICITY [Concomitant]
     Active Substance: DULAGLUTIDE
     Dosage: UNK
  41. MOUNJARO [Concomitant]
     Active Substance: TIRZEPATIDE
     Dosage: UNK

REACTIONS (3)
  - Wrong technique in product usage process [Unknown]
  - Drug dose omission by device [Unknown]
  - Device difficult to use [Unknown]

NARRATIVE: CASE EVENT DATE: 20240313
